FAERS Safety Report 6005016-X (Version None)
Quarter: 2008Q4

REPORT INFORMATION
  Report Type: 
  Country: None (occurrence: None)
  Receive Date: 20081216
  Receipt Date: 20081029
  Transmission Date: 20090506
  Serious: No
  Sender: FDA-Public Use
  Company Number: US-BAUSCH-2008BL004592

PATIENT
  Age: 79 Year
  Sex: Male
  Weight: 86 kg

DRUGS (10)
  1. ALAWAY [Suspect]
     Indication: EYE PRURITUS
     Route: 047
     Dates: start: 20081028, end: 20081028
  2. FLOMAX [Concomitant]
     Indication: URINARY TRACT DISORDER
     Route: 048
  3. METFORMIN HCL [Concomitant]
     Indication: DIABETES MELLITUS
     Route: 048
     Dates: start: 20081008
  4. OXYBUTYNIN CHLORIDE [Concomitant]
     Route: 048
  5. DIPHENOXYLATE W/ATROPINE SULFATE [Concomitant]
     Route: 048
  6. RAMIPRIL [Concomitant]
     Indication: CARDIAC DISORDER
     Route: 048
  7. METOPROLOL SUCCINATE [Concomitant]
     Indication: CARDIAC DISORDER
     Route: 048
  8. GLUCOSAMINE [Concomitant]
     Route: 048
  9. METHYLSULFONYLMETHANE [Concomitant]
     Route: 048
  10. FISH OIL [Concomitant]
     Route: 048

REACTIONS (1)
  - DRUG INEFFECTIVE [None]
